FAERS Safety Report 21774767 (Version 2)
Quarter: 2023Q1

REPORT INFORMATION
  Report Type: Spontaneous
  Country: CH (occurrence: CH)
  Receive Date: 20221224
  Receipt Date: 20230120
  Transmission Date: 20230417
  Serious: Yes (Death, Hospitalization, Other)
  Sender: FDA-Public Use
  Company Number: CH-AMGEN-CHESP2022221663

PATIENT
  Age: 43 Year
  Sex: Male

DRUGS (3)
  1. BLINCYTO [Suspect]
     Active Substance: BLINATUMOMAB
     Indication: Burkitt^s lymphoma
     Dosage: 9 MICROGRAM, QD (FIRST WEEK)
     Route: 040
  2. BLINCYTO [Suspect]
     Active Substance: BLINATUMOMAB
     Indication: Off label use
     Dosage: 28 MICROGRAM, QD (SECOND WEEK)
     Route: 040
  3. BLINCYTO [Suspect]
     Active Substance: BLINATUMOMAB
     Dosage: 112 MICROGRAM, QD (THIRD WEEK)
     Route: 040

REACTIONS (8)
  - Burkitt^s lymphoma recurrent [Fatal]
  - Cytokine release syndrome [Unknown]
  - Cytomegalovirus colitis [Unknown]
  - Neurotoxicity [Recovered/Resolved]
  - Off label use [Unknown]
  - Headache [Recovered/Resolved]
  - Aphasia [Recovered/Resolved]
  - Tremor [Recovered/Resolved]
